FAERS Safety Report 16573016 (Version 1)
Quarter: 2019Q3

REPORT INFORMATION
  Report Type: Report from Study
  Country: US (occurrence: US)
  Receive Date: 20190715
  Receipt Date: 20190715
  Transmission Date: 20191004
  Serious: Yes (Hospitalization)
  Sender: FDA-Public Use
  Company Number: US-BAUSCH-BL-2019-019824

PATIENT
  Age: 67 Year
  Sex: Male

DRUGS (1)
  1. XIFAXAN [Suspect]
     Active Substance: RIFAXIMIN
     Indication: HEPATIC CIRRHOSIS
     Route: 048
     Dates: start: 2005

REACTIONS (4)
  - Dehydration [Unknown]
  - Ammonia increased [Unknown]
  - Acute kidney injury [Unknown]
  - Confusional state [Unknown]

NARRATIVE: CASE EVENT DATE: 20190707
